FAERS Safety Report 4957364-X (Version None)
Quarter: 2006Q1

REPORT INFORMATION
  Report Type: 
  Country: None (occurrence: None)
  Receive Date: 20060327
  Receipt Date: 20060315
  Transmission Date: 20060701
  Serious: Yes (Life-Threatening, Hospitalization)
  Sender: FDA-Public Use
  Company Number: 2006-139835-NL

PATIENT
  Age: 23 Year
  Sex: Female
  Weight: 95 kg

DRUGS (7)
  1. NUVARING [Suspect]
     Indication: CONTRACEPTION
     Dosage: VAGINAL, 3 WEEKS IN, 1 WEEK OUT
     Dates: start: 20040101, end: 20060301
  2. BIAXIN XL [Concomitant]
  3. WELLBUTRIN XL [Concomitant]
  4. TRAZODONE HCL [Concomitant]
  5. ALPRAZOLAM [Concomitant]
  6. ALBUTEROL [Concomitant]
  7. OXYCODONE AND ACETAMINOPHEN [Concomitant]

REACTIONS (5)
  - FEELING HOT [None]
  - PULMONARY EMBOLISM [None]
  - STREPTOCOCCAL INFECTION [None]
  - SYNCOPE [None]
  - WEIGHT DECREASED [None]
